FAERS Safety Report 17948333 (Version 1)
Quarter: 2020Q2

REPORT INFORMATION
  Report Type: Spontaneous
  Country: US (occurrence: US)
  Receive Date: 20200626
  Receipt Date: 20200626
  Transmission Date: 20200714
  Serious: Yes (Hospitalization, Other)
  Sender: FDA-Public Use
  Company Number: US-PFIZER INC-2020245334

PATIENT
  Age: 94 Year
  Sex: Male
  Weight: 89.36 kg

DRUGS (1)
  1. LYRICA [Suspect]
     Active Substance: PREGABALIN
     Indication: NEUROPATHY PERIPHERAL
     Dosage: 50 MG, 3X/DAY (50MG, TAKE TWO AT NIGHT, ONE IN MORNING BY MOUTH)
     Route: 048

REACTIONS (3)
  - Lower limb fracture [Unknown]
  - Thinking abnormal [Unknown]
  - Hip fracture [Recovering/Resolving]

NARRATIVE: CASE EVENT DATE: 202001
